FAERS Safety Report 12726758 (Version 1)
Quarter: 2016Q3

REPORT INFORMATION
  Report Type: Spontaneous
  Country: DE (occurrence: DE)
  Receive Date: 20160908
  Receipt Date: 20160908
  Transmission Date: 20161109
  Serious: Yes (Other)
  Sender: FDA-Public Use
  Company Number: DE-009507513-1609DEU001245

PATIENT
  Age: 59 Year

DRUGS (3)
  1. SIMVASTATIN. [Suspect]
     Active Substance: SIMVASTATIN
     Indication: PROPHYLAXIS
     Dosage: UNK MG, UNK
     Route: 048
     Dates: start: 2006
  2. SIMVASTATIN. [Suspect]
     Active Substance: SIMVASTATIN
     Dosage: 80 MG, UNK
  3. EZETIMIBE MSD-SP [Suspect]
     Active Substance: EZETIMIBE
     Route: 048

REACTIONS (2)
  - Drug ineffective [Unknown]
  - Infarction [Unknown]
